FAERS Safety Report 19012287 (Version 1)
Quarter: 2021Q1

REPORT INFORMATION
  Report Type: Spontaneous
  Country: US (occurrence: US)
  Receive Date: 20210316
  Receipt Date: 20210316
  Transmission Date: 20210420
  Serious: No
  Sender: FDA-Public Use
  Company Number: None

PATIENT
  Age: 38 Year
  Sex: Male
  Weight: 90 kg

DRUGS (1)
  1. MARCAINE [Suspect]
     Active Substance: BUPIVACAINE HYDROCHLORIDE
     Dosage: ?          OTHER FREQUENCY:ONE TIME USE;?
     Dates: start: 20210310, end: 20210310

REACTIONS (1)
  - Therapeutic product effect delayed [None]

NARRATIVE: CASE EVENT DATE: 20210310
